FAERS Safety Report 4990407-6 (Version None)
Quarter: 2006Q2

REPORT INFORMATION
  Report Type: 
  Country: None (occurrence: None)
  Receive Date: 20060427
  Receipt Date: 20060413
  Transmission Date: 20061013
  Serious: Yes (Hospitalization)
  Sender: FDA-Public Use
  Company Number: 2006RR-02024

PATIENT
  Age: 36 Year
  Sex: Female

DRUGS (1)
  1. CLARITHROMYCIN [Suspect]
     Dosage: 500 MG, BID

REACTIONS (4)
  - AKATHISIA [None]
  - CLONUS [None]
  - EYE DISORDER [None]
  - PYREXIA [None]
